FAERS Safety Report 13903332 (Version 8)
Quarter: 2019Q2

REPORT INFORMATION
  Report Type: Spontaneous
  Country: IT (occurrence: IT)
  Receive Date: 20170824
  Receipt Date: 20190617
  Transmission Date: 20190711
  Serious: Yes (Other)
  Sender: FDA-Public Use
  Company Number: IT-MYLANLABS-2017M1048263

PATIENT
  Age: 52 Year
  Sex: Female

DRUGS (3)
  1. ANASTROZOLE. [Suspect]
     Active Substance: ANASTROZOLE
     Indication: BREAST CANCER
     Dosage: 1 MG, QD
     Route: 048
     Dates: start: 201511
  2. TAMOXIFEN CITRATE. [Suspect]
     Active Substance: TAMOXIFEN CITRATE
     Indication: BREAST CANCER
     Dosage: 150 MG, QD
     Route: 048
     Dates: start: 20120201, end: 20120701
  3. FULVESTRANT. [Suspect]
     Active Substance: FULVESTRANT
     Indication: BREAST CANCER
     Dosage: 500 MG, QD
     Route: 030
     Dates: start: 201511

REACTIONS (5)
  - Neoplasm recurrence [Unknown]
  - Lymphadenopathy [Unknown]
  - Drug intolerance [Unknown]
  - Off label use [Unknown]
  - Breast cancer recurrent [Unknown]

NARRATIVE: CASE EVENT DATE: 2015
